FAERS Safety Report 6177859-3 (Version None)
Quarter: 2009Q2

REPORT INFORMATION
  Report Type: 
  Country: None (occurrence: None)
  Receive Date: 20090504
  Receipt Date: 20090423
  Transmission Date: 20091009
  Serious: Yes (Other)
  Sender: FDA-Public Use
  Company Number: SE-JNJFOC-20090405704

PATIENT
  Age: 32 Year
  Sex: Female

DRUGS (5)
  1. REMICADE [Suspect]
     Dosage: 4TH INFUSION
     Route: 042
  2. REMICADE [Suspect]
     Indication: CROHN'S DISEASE
     Dosage: INFUSION 1-3 ON UNSPECIFIED DATES
     Route: 042
  3. ASACOL [Concomitant]
  4. KALCIPOS D [Concomitant]
  5. MULTI-VITAMINS [Concomitant]

REACTIONS (5)
  - ERYTHEMA [None]
  - HYPERSENSITIVITY [None]
  - INFUSION RELATED REACTION [None]
  - PALPITATIONS [None]
  - RESPIRATORY DISTRESS [None]
